FAERS Safety Report 8984116 (Version 1)
Quarter: 2012Q4

REPORT INFORMATION
  Report Type: Spontaneous
  Country: US (occurrence: None)
  Receive Date: 20121213
  Receipt Date: 20121213
  Transmission Date: 20130627
  Serious: Yes (Other)
  Sender: FDA-Public Use
  Company Number: 3005174370-2012-00030

PATIENT
  Sex: Female

DRUGS (1)
  1. CLINPRO 5000 [Suspect]
     Dosage: 2 months

REACTIONS (2)
  - Lip swelling [None]
  - Throat tightness [None]
